FAERS Safety Report 25145820 (Version 1)
Quarter: 2025Q2

REPORT INFORMATION
  Report Type: Spontaneous
  Country: NO (occurrence: NO)
  Receive Date: 20250401
  Receipt Date: 20250401
  Transmission Date: 20250716
  Serious: Yes (Other)
  Sender: PFIZER
  Company Number: NO-GRUNENTHAL-2025-102348

PATIENT

DRUGS (16)
  1. ARTHROTEC [Suspect]
     Active Substance: DICLOFENAC SODIUM\MISOPROSTOL
     Indication: Arthralgia
     Dosage: 50 MG, 3X/DAY
     Dates: start: 20151020, end: 20240601
  2. VIMOVO [Suspect]
     Active Substance: ESOMEPRAZOLE MAGNESIUM\NAPROXEN
     Indication: Arthralgia
     Dates: start: 20151020, end: 20240601
  3. VIMOVO [Suspect]
     Active Substance: ESOMEPRAZOLE MAGNESIUM\NAPROXEN
     Dates: start: 202412
  4. TRAMADOL HYDROCHLORIDE [Suspect]
     Active Substance: TRAMADOL HYDROCHLORIDE
     Indication: Arthralgia
     Dates: start: 20151020, end: 20240601
  5. TRAMADOL HYDROCHLORIDE [Suspect]
     Active Substance: TRAMADOL HYDROCHLORIDE
     Indication: Arthralgia
     Dates: start: 20151020, end: 20240601
  6. DICLOFENAC [Suspect]
     Active Substance: DICLOFENAC
     Indication: Arthralgia
     Dates: start: 20151020, end: 20240601
  7. ACETAMINOPHEN [Suspect]
     Active Substance: ACETAMINOPHEN
     Indication: Arthralgia
     Dates: start: 20151020, end: 20240601
  8. ARCOXIA [Suspect]
     Active Substance: ETORICOXIB
     Indication: Arthralgia
     Dosage: 60 MILLIGRAM, 1/DAY
     Dates: start: 20151020, end: 20240601
  9. ARCOXIA [Suspect]
     Active Substance: ETORICOXIB
     Dates: start: 202305
  10. OXYCONTIN [Suspect]
     Active Substance: OXYCODONE HYDROCHLORIDE
     Indication: Arthralgia
     Dates: start: 20151020, end: 20240601
  11. AMLODIPINE BESYLATE [Suspect]
     Active Substance: AMLODIPINE BESYLATE
     Dates: start: 20151020, end: 20240601
  12. TRAMADOL HYDROCHLORIDE [Suspect]
     Active Substance: TRAMADOL HYDROCHLORIDE
     Indication: Arthralgia
     Dates: start: 20151020, end: 20240601
  13. OZEMPIC [Concomitant]
     Active Substance: SEMAGLUTIDE
     Indication: Overweight
     Dates: start: 20151020, end: 20240601
  14. NEXIUM I.V. [Concomitant]
     Active Substance: ESOMEPRAZOLE SODIUM
     Dates: start: 20151020, end: 20240601
  15. CANDESARTAN [Concomitant]
     Active Substance: CANDESARTAN
     Indication: Hypertension
     Dates: start: 2022
  16. WEGOVY [Concomitant]
     Active Substance: SEMAGLUTIDE
     Indication: Weight control
     Dates: start: 2024

REACTIONS (3)
  - Clear cell renal cell carcinoma [Not Recovered/Not Resolved]
  - Renal cancer recurrent [Not Recovered/Not Resolved]
  - Renal failure [Unknown]

NARRATIVE: CASE EVENT DATE: 20230801
